FAERS Safety Report 9601347 (Version 2)
Quarter: 2013Q4

REPORT INFORMATION
  Report Type: Report from Study
  Country: AR (occurrence: AR)
  Receive Date: 20131007
  Receipt Date: 20131209
  Transmission Date: 20140711
  Serious: Yes (Other)
  Sender: FDA-Public Use
  Company Number: AR-ROCHE-1284558

PATIENT
  Sex: Female

DRUGS (2)
  1. LUCENTIS [Suspect]
     Indication: MACULOPATHY
     Route: 050
     Dates: start: 201306
  2. LUCENTIS [Suspect]
     Indication: RETINAL VASCULAR THROMBOSIS

REACTIONS (7)
  - Hypertension [Recovered/Resolved]
  - Vision blurred [Not Recovered/Not Resolved]
  - Vitreous haemorrhage [Recovered/Resolved]
  - Eye pain [Recovered/Resolved]
  - Ocular discomfort [Not Recovered/Not Resolved]
  - Foreign body sensation in eyes [Not Recovered/Not Resolved]
  - Retinal scar [Unknown]
